FAERS Safety Report 7729128-5 (Version None)
Quarter: 2011Q3

REPORT INFORMATION
  Report Type: 
  Country: None (occurrence: None)
  Receive Date: 20110831
  Receipt Date: 20110831
  Transmission Date: 20111222
  Serious: Yes (Other)
  Sender: FDA-Public Use
  Company Number: None

PATIENT
  Sex: Male
  Weight: 68.0396 kg

DRUGS (1)
  1. CIPROFLOXACIN [Suspect]
     Indication: PROSTATE INFECTION
     Dosage: 1 2X ORAL
     Route: 048
     Dates: start: 20110725, end: 20110731

REACTIONS (7)
  - VISION BLURRED [None]
  - HEADACHE [None]
  - AGITATION [None]
  - PARALYSIS [None]
  - MYALGIA [None]
  - TENDONITIS [None]
  - FATIGUE [None]
